FAERS Safety Report 25431060 (Version 2)
Quarter: 2025Q2

REPORT INFORMATION
  Report Type: Report from Study
  Country: KR (occurrence: KR)
  Receive Date: 20250612
  Receipt Date: 20250626
  Transmission Date: 20250717
  Serious: Yes (Disabling)
  Sender: JOHNSON AND JOHNSON
  Company Number: KR-JNJFOC-20250609724

PATIENT
  Age: 89 Year
  Sex: Male

DRUGS (6)
  1. ERLEADA [Suspect]
     Active Substance: APALUTAMIDE
     Indication: Hormone-dependent prostate cancer
     Route: 048
     Dates: start: 20240531
  2. DICAMAX 1000 tablets [Concomitant]
     Indication: Osteoporosis prophylaxis
     Route: 048
     Dates: start: 20240531
  3. TAMSOL CAPSULE [Concomitant]
     Indication: Product used for unknown indication
     Route: 048
     Dates: start: 20250531
  4. PROLIA PREFILLED SYRINGE [Concomitant]
     Indication: Osteoporosis prophylaxis
     Route: 058
     Dates: start: 20250531
  5. TOPIDERM LOTION 0.05% 120g [Concomitant]
     Indication: Rash
     Route: 061
     Dates: start: 20240903, end: 20240930
  6. DERMATOP LIQUID 0.25% [Concomitant]
     Indication: Rash
     Route: 061
     Dates: start: 20241129, end: 20241227

REACTIONS (1)
  - Cerebral infarction [Not Recovered/Not Resolved]

NARRATIVE: CASE EVENT DATE: 20241201
